FAERS Safety Report 9723681 (Version 1)
Quarter: 2013Q4

REPORT INFORMATION
  Report Type: Spontaneous
  Country: JP (occurrence: JP)
  Receive Date: 20131202
  Receipt Date: 20131202
  Transmission Date: 20140711
  Serious: Yes (Other)
  Sender: FDA-Public Use
  Company Number: JP-GLAXOSMITHKLINE-B0948831A

PATIENT
  Age: 12 Year
  Sex: Female

DRUGS (1)
  1. ALKERAN [Suspect]
     Indication: BONE MARROW TRANSPLANT
     Route: 042

REACTIONS (6)
  - Growth hormone deficiency [Unknown]
  - Deafness [Unknown]
  - Primary hypogonadism [Unknown]
  - Cataract [Unknown]
  - Hypertriglyceridaemia [Unknown]
  - Hyperinsulinism [Unknown]
